FAERS Safety Report 17130882 (Version 1)
Quarter: 2019Q4

REPORT INFORMATION
  Report Type: Spontaneous
  Country: US (occurrence: US)
  Receive Date: 20191209
  Receipt Date: 20191209
  Transmission Date: 20200122
  Serious: No
  Sender: FDA-Public Use
  Company Number: US-ROCHE-2357222

PATIENT
  Age: 74 Year
  Sex: Female

DRUGS (6)
  1. DIAZEPAM. [Suspect]
     Active Substance: DIAZEPAM
     Indication: SEDATION
     Dosage: OVER 10 MINUTES
     Route: 042
  2. LIDOCAINE. [Concomitant]
     Active Substance: LIDOCAINE
  3. DIAZEPAM. [Suspect]
     Active Substance: DIAZEPAM
     Dosage: IN INCREMENTS OVER 20 MIN
     Route: 042
  4. DROPERIDOL. [Suspect]
     Active Substance: DROPERIDOL
     Indication: SEDATION
     Route: 042
  5. DIAZEPAM. [Concomitant]
     Active Substance: DIAZEPAM
     Route: 048
  6. DEXAMETHASONE. [Concomitant]
     Active Substance: DEXAMETHASONE
     Route: 042

REACTIONS (1)
  - Neurological decompensation [Unknown]
